FAERS Safety Report 21904614 (Version 1)
Quarter: 2023Q1

REPORT INFORMATION
  Report Type: Spontaneous
  Country: US (occurrence: US)
  Receive Date: 20230124
  Receipt Date: 20230124
  Transmission Date: 20230417
  Serious: No
  Sender: FDA-Public Use
  Company Number: US-TEVA-2023-US-2845101

PATIENT
  Age: 17 Year
  Sex: Female

DRUGS (1)
  1. METHYLPHENIDATE HYDROCHLORIDE [Suspect]
     Active Substance: METHYLPHENIDATE HYDROCHLORIDE
     Indication: Product used for unknown indication
     Route: 065

REACTIONS (5)
  - Attention deficit hyperactivity disorder [Unknown]
  - Feeling abnormal [Unknown]
  - Affect lability [Unknown]
  - Abdominal pain upper [Unknown]
  - Headache [Unknown]
